FAERS Safety Report 17517096 (Version 1)
Quarter: 2020Q1

REPORT INFORMATION
  Report Type: Spontaneous
  Country: US (occurrence: US)
  Receive Date: 20200309
  Receipt Date: 20200309
  Transmission Date: 20200409
  Serious: Yes (Other)
  Sender: FDA-Public Use
  Company Number: US-ELI_LILLY_AND_COMPANY-US202002011835

PATIENT
  Age: 36 Year
  Sex: Female

DRUGS (5)
  1. XANADINE [Concomitant]
     Indication: PRODUCT USED FOR UNKNOWN INDICATION
     Route: 065
  2. TYLENOL [Concomitant]
     Active Substance: ACETAMINOPHEN
     Indication: PRODUCT USED FOR UNKNOWN INDICATION
     Route: 065
  3. ALMOTRIPTAN. [Concomitant]
     Active Substance: ALMOTRIPTAN
     Indication: MIGRAINE
     Route: 065
  4. EMGALITY [Suspect]
     Active Substance: GALCANEZUMAB-GNLM
     Indication: MIGRAINE
     Dosage: 120 MG, UNKNOWN
     Route: 065
     Dates: start: 201910, end: 202001
  5. AMITRIPTYLINE [Concomitant]
     Active Substance: AMITRIPTYLINE
     Indication: PRODUCT USED FOR UNKNOWN INDICATION
     Route: 065

REACTIONS (12)
  - Nephropathy [Unknown]
  - Paraesthesia [Unknown]
  - Panic attack [Unknown]
  - Vomiting [Unknown]
  - Tremor [Unknown]
  - Nausea [Unknown]
  - Hypoaesthesia [Unknown]
  - Insomnia [Unknown]
  - Anxiety [Unknown]
  - Dyspnoea [Unknown]
  - Neuropathy peripheral [Unknown]
  - Drug ineffective [Unknown]
